FAERS Safety Report 5866945-0 (Version None)
Quarter: 2008Q3

REPORT INFORMATION
  Report Type: 
  Country: None (occurrence: None)
  Receive Date: 20080902
  Receipt Date: 20080829
  Transmission Date: 20090109
  Serious: Yes (Other)
  Sender: FDA-Public Use
  Company Number: A0695751A

PATIENT
  Age: 37 Year
  Sex: Female

DRUGS (1)
  1. ALLI [Suspect]
     Indication: DRUG USE FOR UNKNOWN INDICATION
     Route: 048
     Dates: start: 20070801

REACTIONS (4)
  - ANKLE FRACTURE [None]
  - FEAR [None]
  - HEPATIC ENZYME INCREASED [None]
  - THERAPEUTIC RESPONSE DECREASED [None]
